FAERS Safety Report 25762640 (Version 1)
Quarter: 2025Q3

REPORT INFORMATION
  Report Type: Spontaneous
  Country: EU (occurrence: EU)
  Receive Date: 20250904
  Receipt Date: 20250904
  Transmission Date: 20251021
  Serious: Yes (Other)
  Sender: NOVARTIS
  Company Number: None

PATIENT
  Age: 46 Year
  Sex: Female

DRUGS (1)
  1. PIQRAY [Suspect]
     Active Substance: ALPELISIB
     Indication: Breast cancer metastatic
     Dosage: 300 MG, QD (2X1)
     Route: 065
     Dates: start: 20250310, end: 20250723

REACTIONS (2)
  - Uveitis [Not Recovered/Not Resolved]
  - Papilloedema [Unknown]

NARRATIVE: CASE EVENT DATE: 20250723
